FAERS Safety Report 4608695-4 (Version None)
Quarter: 2005Q1

REPORT INFORMATION
  Report Type: 
  Country: None (occurrence: None)
  Receive Date: 20050315
  Receipt Date: 20050309
  Transmission Date: 20050727
  Serious: Yes (Life-Threatening, Hospitalization, Disabling)
  Sender: FDA-Public Use
  Company Number: US-MERCK-0503USA01382

PATIENT
  Age: 41 Year
  Sex: Male

DRUGS (2)
  1. VIOXX [Suspect]
     Indication: INFLAMMATION
     Route: 048
     Dates: start: 20040301, end: 20040401
  2. ZOLOFT [Concomitant]
     Route: 048

REACTIONS (2)
  - FEELING ABNORMAL [None]
  - MYOCARDIAL INFARCTION [None]
